FAERS Safety Report 4596231-0 (Version None)
Quarter: 2005Q1

REPORT INFORMATION
  Report Type: 
  Country: None (occurrence: None)
  Receive Date: 20050302
  Receipt Date: 20050221
  Transmission Date: 20050727
  Serious: Yes (Other)
  Sender: FDA-Public Use
  Company Number: AU-GLAXOSMITHKLINE-B0372453A

PATIENT

DRUGS (1)
  1. ACETAMINOPHEN [Suspect]
     Dosage: 40G PER DAY
     Route: 048

REACTIONS (1)
  - INTENTIONAL MISUSE [None]
